FAERS Safety Report 18263421 (Version 1)
Quarter: 2020Q3

REPORT INFORMATION
  Report Type: Spontaneous
  Country: JP (occurrence: JP)
  Receive Date: 20200914
  Receipt Date: 20200914
  Transmission Date: 20201103
  Serious: Yes (Other)
  Sender: FDA-Public Use
  Company Number: JP-GILEAD-2020-0494260

PATIENT
  Age: 82 Year
  Sex: Female

DRUGS (11)
  1. AZOSEMIDE [Concomitant]
     Active Substance: AZOSEMIDE
  2. AKINETON [Concomitant]
     Active Substance: BIPERIDEN HYDROCHLORIDE
  3. SPIRONOLACTONE. [Concomitant]
     Active Substance: SPIRONOLACTONE
  4. VEMLIDY [Suspect]
     Active Substance: TENOFOVIR ALAFENAMIDE FUMARATE
     Indication: PRODUCT USED FOR UNKNOWN INDICATION
     Dosage: UNK
     Route: 065
  5. LIMAPROST ALFADEX [Concomitant]
     Active Substance: LIMAPROST
  6. ZYPREXA [Concomitant]
     Active Substance: OLANZAPINE
  7. FERROUS CITRATE NA [Concomitant]
     Active Substance: SODIUM FERROUS CITRATE
  8. CELECOX [Concomitant]
     Active Substance: CELECOXIB
  9. REBAMIPIDE [Concomitant]
     Active Substance: REBAMIPIDE
  10. ETIZOLAM [Concomitant]
     Active Substance: ETIZOLAM
  11. GLUCONSAN K [Concomitant]
     Active Substance: POTASSIUM GLUCONATE

REACTIONS (1)
  - Gastrointestinal perforation [Unknown]
